FAERS Safety Report 5989505-X (Version None)
Quarter: 2008Q4

REPORT INFORMATION
  Report Type: 
  Country: None (occurrence: None)
  Receive Date: 20081208
  Receipt Date: 20081202
  Transmission Date: 20090506
  Serious: Yes (Hospitalization, Other)
  Sender: FDA-Public Use
  Company Number: 1000003005

PATIENT
  Age: 66 Year
  Sex: Female

DRUGS (12)
  1. LEXAPRO [Suspect]
     Dosage: 10 MG, (10 MG, 1 IN 1 D), ORAL, 20 MG, 1 IN 1 D, ORAL
     Route: 048
     Dates: start: 20071031, end: 20080101
  2. LEXAPRO [Suspect]
     Dosage: 10 MG, (10 MG, 1 IN 1 D), ORAL, 20 MG, 1 IN 1 D, ORAL
     Route: 048
     Dates: start: 20080101, end: 20081104
  3. LEXAPRO [Suspect]
     Dosage: 20 MG (20 MG, ONCE), ORAL, 10 MG (10 MG, 1 IN 1 D, ORAL, 5 MG (5MG, 1 IN 1 D), ORAL
     Route: 048
     Dates: start: 20081112, end: 20081112
  4. LEXAPRO [Suspect]
     Dosage: 20 MG (20 MG, ONCE), ORAL, 10 MG (10 MG, 1 IN 1 D, ORAL, 5 MG (5MG, 1 IN 1 D), ORAL
     Route: 048
     Dates: start: 20081113, end: 20081119
  5. LEXAPRO [Suspect]
     Dosage: 20 MG (20 MG, ONCE), ORAL, 10 MG (10 MG, 1 IN 1 D, ORAL, 5 MG (5MG, 1 IN 1 D), ORAL
     Route: 048
     Dates: start: 20081120, end: 20081126
  6. LEXAPRO [Suspect]
     Dosage: 20 MG (20 MG, ONCE), ORAL, 10 MG (10 MG, 1 IN 1 D, ORAL, 5 MG (5MG, 1 IN 1 D), ORAL
     Route: 048
     Dates: start: 20081127, end: 20081201
  7. XANAX [Suspect]
     Indication: ANXIETY
     Dosage: 0.5 MG (0.5 MG, AS REQUIRED), ORAL
     Route: 048
     Dates: start: 20081101, end: 20081101
  8. LISINOPRIL [Concomitant]
  9. PROTONIX [Concomitant]
  10. NORVASC [Concomitant]
  11. CARAFATE [Concomitant]
  12. MIRALAX [Concomitant]

REACTIONS (13)
  - AGGRESSION [None]
  - AGITATION [None]
  - ANXIETY [None]
  - CERVICAL VERTEBRAL FRACTURE [None]
  - CONDITION AGGRAVATED [None]
  - FALL [None]
  - SEDATION [None]
  - SOMNOLENCE [None]
  - THINKING ABNORMAL [None]
  - THROMBOCYTOPENIA [None]
  - TYPE 2 DIABETES MELLITUS [None]
  - VERBAL ABUSE [None]
  - VIOLENCE-RELATED SYMPTOM [None]
